FAERS Safety Report 9242592 (Version 3)
Quarter: 2013Q3

REPORT INFORMATION
  Report Type: Spontaneous
  Country: IE (occurrence: IE)
  Receive Date: 20130419
  Receipt Date: 20130708
  Transmission Date: 20140515
  Serious: Yes (Other)
  Sender: FDA-Public Use
  Company Number: PHFR2010IE03478

PATIENT
  Age: 56 Year
  Sex: Female

DRUGS (17)
  1. CLOZARIL [Suspect]
     Indication: SCHIZOPHRENIA
     Dosage: 12.5 MG, DAILY
     Route: 048
     Dates: start: 20091125
  2. CLOZARIL [Suspect]
     Dosage: 12.5 MG, BID
     Dates: start: 20091126
  3. CLOZARIL [Suspect]
     Dosage: 37.5 MG, UNK
     Dates: start: 20091128
  4. CLOZARIL [Suspect]
     Dosage: 97.5 MG, UNK
     Dates: start: 20091201
  5. CLOZARIL [Suspect]
     Dosage: 100 MG, UNK
     Dates: start: 20091206, end: 20100110
  6. CLOZAPINE [Suspect]
     Dosage: 50 MG, EVENING
     Dates: start: 20100106, end: 20100110
  7. EPILIM CHRONO [Concomitant]
     Dosage: 85 MG, UNK
  8. AMLODIPINE [Concomitant]
     Dosage: 5 MG, UNK
  9. METFORMIN [Concomitant]
     Dosage: 1000 MG
  10. CALCIUM D3 F [Concomitant]
     Dosage: BID
  11. CITALOPRAM [Concomitant]
     Dosage: 10 MG QD
  12. LACTULOSE [Concomitant]
     Dosage: 10 MG BID
  13. LEVOTHYROXINE [Concomitant]
     Dosage: 25 MG, QD
  14. ZOPICLONE [Concomitant]
     Dosage: UNK UKN, UNK
  15. DULCOLAX [Concomitant]
     Dosage: 10 MG, EVENING
  16. HALOPERIDOL [Concomitant]
     Dosage: 5 MG, BID
  17. DECORT [Concomitant]
     Dosage: 1 MG, BID

REACTIONS (10)
  - Vision blurred [Recovered/Resolved]
  - Vomiting [Recovered/Resolved]
  - Diarrhoea [Recovered/Resolved]
  - Nausea [Recovered/Resolved]
  - Constipation [Recovered/Resolved]
  - Abdominal distension [Recovered/Resolved]
  - Dry throat [Recovered/Resolved]
  - Peptic ulcer [Recovered/Resolved]
  - Abdominal pain [Recovered/Resolved]
  - Fatigue [Recovered/Resolved]
